FAERS Safety Report 6571536-2 (Version None)
Quarter: 2010Q1

REPORT INFORMATION
  Report Type: 
  Country: None (occurrence: None)
  Receive Date: 20100205
  Receipt Date: 20100126
  Transmission Date: 20100710
  Serious: Yes (Hospitalization)
  Sender: FDA-Public Use
  Company Number: FR-JNJFOC-20100110999

PATIENT
  Sex: Female

DRUGS (2)
  1. REMICADE [Suspect]
     Indication: COLITIS ULCERATIVE
     Route: 042
     Dates: start: 20090801
  2. REMICADE [Suspect]
     Route: 042
     Dates: start: 20090801

REACTIONS (5)
  - DRUG INEFFECTIVE [None]
  - FOOD INTOLERANCE [None]
  - HEADACHE [None]
  - PYREXIA [None]
  - VOMITING [None]
